FAERS Safety Report 6192134-9 (Version None)
Quarter: 2009Q2

REPORT INFORMATION
  Report Type: 
  Country: None (occurrence: None)
  Receive Date: 20090515
  Receipt Date: 20090506
  Transmission Date: 20091009
  Serious: Yes (Hospitalization)
  Sender: FDA-Public Use
  Company Number: UA-PFIZER INC-2009201238

PATIENT
  Age: 9 Month

DRUGS (3)
  1. TIMOLOL MALEATE [Suspect]
     Dosage: 0.25 %, 2X/DAY
     Route: 047
     Dates: start: 20090408, end: 20090413
  2. TIMOLOL MALEATE [Suspect]
     Dosage: ONE DROP OU, 2X/DAY
     Dates: start: 20090413
  3. LATANOPROST [Suspect]
     Dosage: ONE DROP OU, 1X/DAY
     Route: 047
     Dates: start: 20090413

REACTIONS (1)
  - PNEUMONIA [None]
